FAERS Safety Report 9001947 (Version 2)
Quarter: 2013Q1

REPORT INFORMATION
  Report Type: Spontaneous
  Country: CN (occurrence: CN)
  Receive Date: 20130108
  Receipt Date: 20130124
  Transmission Date: 20140127
  Serious: Yes (Other)
  Sender: FDA-Public Use
  Company Number: CN-BRISTOL-MYERS SQUIBB COMPANY-17227828

PATIENT
  Age: 52 Year
  Sex: Female
  Weight: 55 kg

DRUGS (1)
  1. APROVEL [Suspect]
     Indication: HYPERTENSION
     Dosage: DOSE INCR TO 2 TABS,3 TABS. ATLAST ANOTHER APROVEL WITH DIFF LOT NO.USED
     Route: 048
     Dates: start: 20121124, end: 20121210

REACTIONS (2)
  - Blood pressure increased [Recovered/Resolved]
  - Suspected counterfeit product [Unknown]
